FAERS Safety Report 18274492 (Version 1)
Quarter: 2020Q3

REPORT INFORMATION
  Report Type: Spontaneous
  Country: US (occurrence: US)
  Receive Date: 20200916
  Receipt Date: 20200916
  Transmission Date: 20201103
  Serious: Yes (Hospitalization)
  Sender: FDA-Public Use
  Company Number: US-MYLANLABS-2020M1079127

PATIENT
  Age: 73 Year
  Sex: Male

DRUGS (16)
  1. SUFENTANIL [Suspect]
     Active Substance: SUFENTANIL
     Dosage: 5 MICROGRAM, 2 ADDITIONAL DOSES
     Route: 042
  2. SUFENTANIL [Suspect]
     Active Substance: SUFENTANIL
     Dosage: A TOTAL OF 40 MICROG OF SUFENTANIL WAS LIKELY ADMINISTERED
     Route: 042
  3. PROPOFOL. [Concomitant]
     Active Substance: PROPOFOL
     Indication: INDUCTION OF ANAESTHESIA
     Dosage: 30 MILLIGRAM
     Route: 042
  4. EZETIMIBE. [Concomitant]
     Active Substance: EZETIMIBE
     Indication: PRODUCT USED FOR UNKNOWN INDICATION
     Route: 065
  5. ROCURONIUM [Concomitant]
     Active Substance: ROCURONIUM BROMIDE
     Indication: INDUCTION OF ANAESTHESIA
     Dosage: 100 MILLIGRAM AFTER LOSS OF CONSCIOUSNESS
     Route: 042
  6. EPINEPHRINE. [Suspect]
     Active Substance: EPINEPHRINE
     Dosage: A TOTAL OF 400 MICROG OF EPINEPHRINE WAS LIKELY ADMINISTERED
     Route: 042
  7. MIDAZOLAM. [Concomitant]
     Active Substance: MIDAZOLAM
     Indication: INDUCTION OF ANAESTHESIA
     Dosage: 3 MILLIGRAM
     Route: 042
  8. MIDAZOLAM. [Concomitant]
     Active Substance: MIDAZOLAM
     Dosage: 2 MILLIGRAM, INDUCTION PROCEEDED
     Route: 042
  9. SEVOFLURANE. [Concomitant]
     Active Substance: SEVOFLURANE
     Indication: MAINTENANCE OF ANAESTHESIA
     Dosage: INHALATION
     Route: 055
  10. EPINEPHRINE. [Suspect]
     Active Substance: EPINEPHRINE
     Indication: PRODUCT USED FOR UNKNOWN INDICATION
     Dosage: 50 MICROG/ML
     Route: 042
  11. ATENOLOL. [Concomitant]
     Active Substance: ATENOLOL
     Indication: PRODUCT USED FOR UNKNOWN INDICATION
     Route: 065
  12. LOSARTAN. [Concomitant]
     Active Substance: LOSARTAN
     Indication: PRODUCT USED FOR UNKNOWN INDICATION
     Route: 065
  13. NORMAL SALINE [Concomitant]
     Active Substance: SODIUM CHLORIDE
     Indication: VEHICLE SOLUTION USE
     Route: 042
  14. SUFENTANIL [Suspect]
     Active Substance: SUFENTANIL
     Indication: INDUCTION OF ANAESTHESIA
     Dosage: 20 MICROGRAM, FOLLOWING PRE?OXYGENATION
     Route: 042
  15. SUFENTANIL [Suspect]
     Active Substance: SUFENTANIL
     Dosage: 10 MICROGRAM, INDUCTION PROCEEDED
     Route: 042
  16. PROPOFOL. [Concomitant]
     Active Substance: PROPOFOL
     Dosage: 200 MILLIGRAM, INDUCTION PROCEEDED
     Route: 042

REACTIONS (7)
  - Ventricular extrasystoles [Recovered/Resolved]
  - Product preparation issue [Recovered/Resolved]
  - Overdose [Recovered/Resolved]
  - Ventricular tachycardia [Recovered/Resolved]
  - Ventricular arrhythmia [Recovered/Resolved]
  - Hypertension [Recovered/Resolved]
  - Product packaging confusion [Recovered/Resolved]
